FAERS Safety Report 17949720 (Version 1)
Quarter: 2020Q2

REPORT INFORMATION
  Report Type: Spontaneous
  Country: FR (occurrence: FR)
  Receive Date: 20200626
  Receipt Date: 20200626
  Transmission Date: 20200714
  Serious: Yes (Hospitalization)
  Sender: FDA-Public Use
  Company Number: FR-ACCORD-187184

PATIENT
  Age: 87 Year
  Sex: Male
  Weight: 71 kg

DRUGS (3)
  1. XELODA [Suspect]
     Active Substance: CAPECITABINE
     Indication: COLORECTAL CANCER METASTATIC
     Dosage: STRENGTH: 500 MG, 2 WEEKS OUT OF 3
     Route: 048
     Dates: start: 20200327, end: 20200424
  2. FLUOROURACIL. [Suspect]
     Active Substance: FLUOROURACIL
     Indication: PRODUCT USED FOR UNKNOWN INDICATION
  3. AVASTIN [Suspect]
     Active Substance: BEVACIZUMAB
     Indication: COLORECTAL CANCER METASTATIC
     Dosage: STRENGTH: 25 MG / ML
     Route: 042
     Dates: start: 20200317

REACTIONS (1)
  - Duodenal perforation [Recovered/Resolved]

NARRATIVE: CASE EVENT DATE: 20200423
